FAERS Safety Report 12240519 (Version 1)
Quarter: 2016Q2

REPORT INFORMATION
  Report Type: Spontaneous
  Country: GB (occurrence: GB)
  Receive Date: 20160405
  Receipt Date: 20160405
  Transmission Date: 20160815
  Serious: Yes (Other)
  Sender: FDA-Public Use
  Company Number: GB-009507513-1601GBR008339

PATIENT
  Age: 24 Year
  Sex: Female
  Weight: 111 kg

DRUGS (3)
  1. NEXPLANON [Suspect]
     Active Substance: ETONOGESTREL
     Dosage: UNK
     Route: 059
     Dates: start: 2012
  2. NEXPLANON [Suspect]
     Active Substance: ETONOGESTREL
     Dosage: UNK, RIGHT ARM
     Route: 058
     Dates: start: 20151221
  3. NEXPLANON [Suspect]
     Active Substance: ETONOGESTREL
     Dosage: UNK, LEFT ARM
     Route: 058
     Dates: start: 20151103, end: 20151221

REACTIONS (4)
  - Candida infection [Unknown]
  - Implant site infection [Unknown]
  - Implant site infection [Unknown]
  - Implant site hypersensitivity [Unknown]

NARRATIVE: CASE EVENT DATE: 2015
